FAERS Safety Report 22128974 (Version 1)
Quarter: 2023Q1

REPORT INFORMATION
  Report Type: Report from Study
  Country: DE (occurrence: DE)
  Receive Date: 20230323
  Receipt Date: 20230323
  Transmission Date: 20230417
  Serious: Yes (Other)
  Sender: FDA-Public Use
  Company Number: DE-UCBSA-2023014482

PATIENT
  Sex: Female

DRUGS (1)
  1. CIMZIA [Suspect]
     Active Substance: CERTOLIZUMAB PEGOL
     Indication: Rheumatoid arthritis
     Dosage: 400 MILLIGRAM
     Dates: start: 20230206

REACTIONS (9)
  - Lipoedema [Unknown]
  - Fatigue [Unknown]
  - Listless [Unknown]
  - Pain in extremity [Unknown]
  - Influenza [Unknown]
  - Abdominal pain [Unknown]
  - Back pain [Unknown]
  - Illness [Unknown]
  - Drug ineffective [Unknown]
